FAERS Safety Report 9717541 (Version 1)
Quarter: 2013Q4

REPORT INFORMATION
  Report Type: Spontaneous
  Country: US (occurrence: US)
  Receive Date: 20131127
  Receipt Date: 20131127
  Transmission Date: 20140711
  Serious: No
  Sender: FDA-Public Use
  Company Number: US-GILEAD-2009-0020852

PATIENT
  Sex: Female
  Weight: 63.5 kg

DRUGS (14)
  1. LETAIRIS [Suspect]
     Indication: PULMONARY ARTERIAL HYPERTENSION
     Route: 048
     Dates: start: 20090216
  2. VENTAVIS [Concomitant]
  3. ASPIRIN [Concomitant]
  4. OXYGEN [Concomitant]
  5. NORVASC [Concomitant]
  6. ALTACE [Concomitant]
  7. PREDNISONE [Concomitant]
  8. PRILOSEC [Concomitant]
  9. XANAX [Concomitant]
  10. ULTRACET [Concomitant]
  11. NATURAL CO-Q10 [Concomitant]
  12. CALCIUM CITRATE [Concomitant]
  13. POLYETHYLENE GLYCOL [Concomitant]
  14. MIRALAX [Concomitant]

REACTIONS (1)
  - Local swelling [Unknown]
